FAERS Safety Report 24169425 (Version 1)
Quarter: 2024Q3

REPORT INFORMATION
  Report Type: Report from Study
  Country: US (occurrence: US)
  Receive Date: 20240802
  Receipt Date: 20240802
  Transmission Date: 20241016
  Serious: Yes (Other)
  Sender: COVIS PHARMA
  Company Number: US-AstraZeneca-2021A339588

PATIENT
  Age: 72 Year
  Sex: Female
  Weight: 52.2 kg

DRUGS (2)
  1. ACLIDINIUM BROMIDE\FORMOTEROL FUMARATE [Suspect]
     Active Substance: ACLIDINIUM BROMIDE\FORMOTEROL FUMARATE
     Indication: Chronic obstructive pulmonary disease
     Dosage: 400 MCG/12 MCG, 1 PUFF, TWICE DAILY
     Route: 055
     Dates: start: 2020
  2. SYMBICORT [Suspect]
     Active Substance: BUDESONIDE\FORMOTEROL FUMARATE DIHYDRATE
     Indication: Dyspnoea
     Dosage: 160/4.5, TWO PUFFS, TWICE DAILY
     Route: 055
     Dates: end: 2020

REACTIONS (5)
  - Colon cancer [Unknown]
  - Pulmonary mass [Unknown]
  - Dyspnoea [Unknown]
  - Product dose omission issue [Unknown]
  - Weight decreased [Unknown]

NARRATIVE: CASE EVENT DATE: 20210301
